FAERS Safety Report 14291022 (Version 5)
Quarter: 2022Q2

REPORT INFORMATION
  Report Type: Spontaneous
  Country: ES (occurrence: ES)
  Receive Date: 20171215
  Receipt Date: 20220406
  Transmission Date: 20220720
  Serious: Yes (Hospitalization, Other)
  Sender: FDA-Public Use
  Company Number: None

PATIENT
  Age: 78 Year
  Sex: Male

DRUGS (5)
  1. MEROPENEM [Interacting]
     Active Substance: MEROPENEM
     Indication: Urinary tract infection
     Dosage: 3 G, 1X/DAY
     Route: 042
     Dates: start: 20171002, end: 20171010
  2. MEROPENEM [Interacting]
     Active Substance: MEROPENEM
     Indication: Pyrexia
  3. QUETIAPINE [Interacting]
     Active Substance: QUETIAPINE
     Indication: Agitation
     Dosage: 25 MG, 1X/DAY
     Route: 048
     Dates: start: 20170928, end: 20171003
  4. ERTAPENEM [Interacting]
     Active Substance: ERTAPENEM
     Indication: Pyrexia
     Dosage: 1 G, QD (CUMULATIVE DOSE 3G)
     Route: 042
     Dates: start: 20170929, end: 20171002
  5. ERTAPENEM [Interacting]
     Active Substance: ERTAPENEM
     Indication: Urinary tract infection

REACTIONS (2)
  - Drug interaction [Unknown]
  - Encephalopathy [Recovered/Resolved]

NARRATIVE: CASE EVENT DATE: 20170101
